FAERS Safety Report 4660163-X (Version None)
Quarter: 2005Q2

REPORT INFORMATION
  Report Type: 
  Country: None (occurrence: None)
  Receive Date: 20050427
  Receipt Date: 20050309
  Transmission Date: 20051028
  Serious: No
  Sender: FDA-Public Use
  Company Number: 212986

PATIENT
  Age: 17 Year
  Sex: Male

DRUGS (1)
  1. XOLAIR [Suspect]
     Dosage: 225 UNK, QW
     Dates: start: 20050101

REACTIONS (2)
  - PSEUDOMONAS INFECTION [None]
  - VIRAL INFECTION [None]
